FAERS Safety Report 7128753-2 (Version None)
Quarter: 2010Q4

REPORT INFORMATION
  Report Type: 
  Country: None (occurrence: None)
  Receive Date: 20101130
  Receipt Date: 20101125
  Transmission Date: 20110411
  Serious: Yes (Other)
  Sender: FDA-Public Use
  Company Number: FR-BRISTOL-MYERS SQUIBB COMPANY-15408156

PATIENT
  Age: 74 Year
  Sex: Male

DRUGS (4)
  1. ABILIFY [Suspect]
     Indication: DEPRESSION
     Route: 048
     Dates: end: 20101101
  2. ABILIFY [Suspect]
     Indication: DELUSION
     Route: 048
     Dates: end: 20101101
  3. THERALENE [Suspect]
     Dates: end: 20101101
  4. DEPAKOTE [Suspect]

REACTIONS (2)
  - PARKINSONISM [None]
  - PSYCHOMOTOR RETARDATION [None]
